FAERS Safety Report 21363202 (Version 2)
Quarter: 2024Q1

REPORT INFORMATION
  Report Type: Spontaneous
  Country: IE (occurrence: IE)
  Receive Date: 20220922
  Receipt Date: 20240225
  Transmission Date: 20240409
  Serious: Yes (Hospitalization)
  Sender: FDA-Public Use
  Company Number: IE-BAXTER-2022BAX019034

PATIENT
  Age: 28 Year
  Sex: Female

DRUGS (3)
  1. MEROPENEM [Suspect]
     Active Substance: MEROPENEM
     Indication: Osteomyelitis
     Dosage: UNK
     Route: 042
     Dates: start: 20220819, end: 20220903
  2. SODIUM CHLORIDE [Suspect]
     Active Substance: SODIUM CHLORIDE
     Indication: Osteomyelitis
     Dosage: 60 ML IN SV200 INTERMATE
     Route: 042
     Dates: start: 20220819, end: 20220903
  3. WATER [Suspect]
     Active Substance: WATER
     Indication: Medication dilution
     Dosage: 20 ML, IN SV200 INTERMATE
     Route: 042
     Dates: start: 20220819, end: 20220903

REACTIONS (9)
  - Headache [Recovered/Resolved]
  - Lymphadenopathy [Recovered/Resolved]
  - Rash [Recovering/Resolving]
  - Adverse drug reaction [Recovering/Resolving]
  - Malaise [Recovering/Resolving]
  - Heart rate increased [Recovering/Resolving]
  - Pyrexia [Recovering/Resolving]
  - Rash maculo-papular [Unknown]
  - Off label use [Unknown]

NARRATIVE: CASE EVENT DATE: 20220901
